FAERS Safety Report 4933965-X (Version None)
Quarter: 2006Q1

REPORT INFORMATION
  Report Type: 
  Country: None (occurrence: None)
  Receive Date: 20060303
  Receipt Date: 20060301
  Transmission Date: 20060701
  Serious: Yes (Other)
  Sender: FDA-Public Use
  Company Number: 221277

PATIENT
  Age: 35 Year
  Sex: Female

DRUGS (2)
  1. RITUXAN [Suspect]
     Indication: WEGENER'S GRANULOMATOSIS
  2. PREDNISONE TAB [Concomitant]

REACTIONS (5)
  - CHOLANGITIS SCLEROSING [None]
  - CHOLESTASIS [None]
  - CONDITION AGGRAVATED [None]
  - DISEASE RECURRENCE [None]
  - WEGENER'S GRANULOMATOSIS [None]
